FAERS Safety Report 4779694-7 (Version None)
Quarter: 2005Q3

REPORT INFORMATION
  Report Type: 
  Country: None (occurrence: None)
  Receive Date: 20050914
  Receipt Date: 20050430
  Transmission Date: 20060218
  Serious: Yes (Hospitalization)
  Sender: FDA-Public Use
  Company Number: 163-20785-05030531

PATIENT
  Age: 63 Year
  Sex: Male

DRUGS (27)
  1. THALOMID [Suspect]
     Indication: MULTIPLE MYELOMA
     Dosage: ORAL; ORAL
     Route: 048
     Dates: start: 20040825
  2. THALOMID [Suspect]
     Indication: MULTIPLE MYELOMA
     Dosage: ORAL; ORAL
     Route: 048
     Dates: start: 20041007
  3. MELPHALAN (MELPHALAN) [Suspect]
     Indication: MULTIPLE MYELOMA
     Dosage: 372 MG, DAILY, INTRAVENOUS; 362 MG, DAILY, INTRAVENOUS
     Route: 042
     Dates: start: 20041109, end: 20041109
  4. MELPHALAN (MELPHALAN) [Suspect]
     Indication: MULTIPLE MYELOMA
     Dosage: 372 MG, DAILY, INTRAVENOUS; 362 MG, DAILY, INTRAVENOUS
     Route: 042
     Dates: start: 20050109, end: 20050109
  5. VELCADE [Suspect]
     Indication: MULTIPLE MYELOMA
     Dates: start: 20040825
  6. VELCADE [Suspect]
     Indication: MULTIPLE MYELOMA
     Dates: start: 20041007
  7. DEXAMETHASONE [Suspect]
     Indication: MULTIPLE MYELOMA
     Dates: start: 20040825
  8. DEXAMETHASONE [Suspect]
     Indication: MULTIPLE MYELOMA
     Dates: start: 20041007
  9. CISPLATIN [Suspect]
     Indication: MULTIPLE MYELOMA
     Dates: start: 20040825
  10. CISPLATIN [Suspect]
     Indication: MULTIPLE MYELOMA
     Dates: start: 20041007
  11. ADRIAMYCIN PFS [Suspect]
     Indication: MULTIPLE MYELOMA
     Dates: start: 20040825
  12. ADRIAMYCIN PFS [Suspect]
     Indication: MULTIPLE MYELOMA
     Dates: start: 20041007
  13. CYCLOPHOSPHAMIDE [Suspect]
     Indication: MULTIPLE MYELOMA
     Dates: start: 20040825
  14. CYCLOPHOSPHAMIDE [Suspect]
     Indication: MULTIPLE MYELOMA
     Dates: start: 20041007
  15. ETOPOSIDE [Suspect]
     Indication: MULTIPLE MYELOMA
     Dates: start: 20040825
  16. ETOPOSIDE [Suspect]
     Indication: MULTIPLE MYELOMA
     Dates: start: 20041007
  17. ACYCLOVIR [Concomitant]
  18. FOLIC ACID [Concomitant]
  19. MULTIVITAMIN (MULTIVITAMINS) (TABLETS) [Concomitant]
  20. HEPARIN [Concomitant]
  21. PANTOPRAZOLE [Concomitant]
  22. ALBUTEROL (SALBUTAMOL) (AEROSOL FOR INHALATION) [Concomitant]
  23. MORPHINE [Concomitant]
  24. ZOLOFT [Concomitant]
  25. INVANZ (ERTAPENEM SODIUM) [Concomitant]
  26. LOPERAMIDE [Concomitant]
  27. VORICONAZOLE [Concomitant]

REACTIONS (12)
  - ABDOMINAL PAIN [None]
  - ADRENAL INSUFFICIENCY [None]
  - ANOREXIA [None]
  - COLITIS [None]
  - DIARRHOEA [None]
  - DYSPNOEA [None]
  - FEBRILE NEUTROPENIA [None]
  - HYPOXIA [None]
  - MUCOSAL INFLAMMATION [None]
  - NAUSEA [None]
  - PLEURAL EFFUSION [None]
  - PNEUMONIA [None]
